FAERS Safety Report 13827511 (Version 1)
Quarter: 2017Q3

REPORT INFORMATION
  Report Type: Spontaneous
  Country: US (occurrence: US)
  Receive Date: 20170802
  Receipt Date: 20170802
  Transmission Date: 20171127
  Serious: Yes (Disabling)
  Sender: FDA-Public Use
  Company Number: US-MYLANLABS-2017M1047608

PATIENT

DRUGS (7)
  1. SPIRONOLACTONE TABLETS, USP [Suspect]
     Active Substance: SPIRONOLACTONE
     Indication: CARDIOMYOPATHY
     Dosage: 25 MG, QD
     Route: 048
     Dates: start: 20170624, end: 20170627
  2. CARVEDILOL. [Concomitant]
     Active Substance: CARVEDILOL
     Indication: PRODUCT USED FOR UNKNOWN INDICATION
     Dosage: UNK
  3. PREVACID [Concomitant]
     Active Substance: LANSOPRAZOLE
     Indication: PRODUCT USED FOR UNKNOWN INDICATION
     Dosage: 15 MG, UNK
  4. ZYRTEC [Concomitant]
     Active Substance: CETIRIZINE HYDROCHLORIDE
     Indication: HYPERSENSITIVITY
     Dosage: UNK
  5. SPIRONOLACTONE TABLETS, USP [Suspect]
     Active Substance: SPIRONOLACTONE
     Indication: BLOOD POTASSIUM ABNORMAL
  6. FUROSEMIDE. [Concomitant]
     Active Substance: FUROSEMIDE
     Indication: PRODUCT USED FOR UNKNOWN INDICATION
     Dosage: UNK
  7. VITAMINS [Concomitant]
     Active Substance: VITAMINS
     Indication: PRODUCT USED FOR UNKNOWN INDICATION
     Dosage: UNK

REACTIONS (5)
  - Palpitations [Not Recovered/Not Resolved]
  - Unevaluable event [Recovered/Resolved]
  - Loss of personal independence in daily activities [Recovered/Resolved]
  - Vision blurred [Recovered/Resolved]
  - Nausea [Recovered/Resolved]

NARRATIVE: CASE EVENT DATE: 20170624
